FAERS Safety Report 9999083 (Version 1)
Quarter: 2014Q1

REPORT INFORMATION
  Report Type: Spontaneous
  Country: US (occurrence: None)
  Receive Date: 20140311
  Receipt Date: 20140311
  Transmission Date: 20141002
  Serious: Yes (Other)
  Sender: FDA-Public Use
  Company Number: None

PATIENT
  Age: 65 Year
  Sex: Male
  Weight: 99.79 kg

DRUGS (1)
  1. SIMVASTATIN, 40 MG, UNKNOWN MANUFACTURER [Suspect]
     Indication: BLOOD CHOLESTEROL
     Dosage: DIGESTED

REACTIONS (1)
  - Abdominal discomfort [None]
